FAERS Safety Report 21570532 (Version 2)
Quarter: 2022Q4

REPORT INFORMATION
  Report Type: Report from Study
  Country: PR (occurrence: PR)
  Receive Date: 20221109
  Receipt Date: 20221116
  Transmission Date: 20230113
  Serious: Yes (Other)
  Sender: FDA-Public Use
  Company Number: PR-ABBVIE-4191378

PATIENT
  Sex: Male

DRUGS (1)
  1. HUMIRA [Suspect]
     Active Substance: ADALIMUMAB
     Indication: Colitis ulcerative
     Dosage: FORM STRENGTH: 40 MILLIGRAM
     Route: 058
     Dates: start: 2016

REACTIONS (3)
  - Renal failure [Recovering/Resolving]
  - Pancreatitis [Recovering/Resolving]
  - White blood cells urine positive [Recovering/Resolving]

NARRATIVE: CASE EVENT DATE: 20221001
